FAERS Safety Report 4416542-9 (Version None)
Quarter: 2004Q2

REPORT INFORMATION
  Report Type: 
  Country: None (occurrence: None)
  Receive Date: 20040630
  Receipt Date: 20040524
  Transmission Date: 20050107
  Serious: Yes (Hospitalization)
  Sender: FDA-Public Use
  Company Number: 04P-163-0261981-00

PATIENT
  Age: 54 Year
  Sex: Female
  Weight: 97.977 kg

DRUGS (17)
  1. HUMIRA [Suspect]
     Indication: RHEUMATOID ARTHRITIS
     Dosage: 40 MG, 1 IN 2 WK, SUBCUTANEOUS
     Route: 058
     Dates: start: 20040101
  2. CELECOXIB [Concomitant]
  3. VALSARTAN [Concomitant]
  4. ALENDRONATE SODIUM [Concomitant]
  5. METOPROLOL TARTRATE [Concomitant]
  6. METHOTREXATE [Concomitant]
  7. AMLODIPINE BESYLATE [Concomitant]
  8. HYDROXYCHLOROQUINE PHOSPHATE [Concomitant]
  9. CLOPIDOGREL BISULFATE [Concomitant]
  10. PREDNISONE [Concomitant]
  11. LEVOTHYROXINE SODIUM [Concomitant]
  12. FENOFIBRATE [Concomitant]
  13. ALPRAZOLAM [Concomitant]
  14. TIZANIDINE HYDROCHLORIDE [Concomitant]
  15. SERTRALINE HYDROCHLORIDE [Concomitant]
  16. ASPIRIN [Concomitant]
  17. CALCIUM [Concomitant]

REACTIONS (3)
  - INJECTION SITE ERYTHEMA [None]
  - INJECTION SITE HAEMORRHAGE [None]
  - MYOCARDIAL INFARCTION [None]
